FAERS Safety Report 20473606 (Version 1)
Quarter: 2022Q1

REPORT INFORMATION
  Report Type: Spontaneous
  Country: DE (occurrence: DE)
  Receive Date: 20220215
  Receipt Date: 20220215
  Transmission Date: 20220423
  Serious: Yes (Hospitalization, Other)
  Sender: FDA-Public Use
  Company Number: None

PATIENT
  Age: 81 Year
  Sex: Female
  Weight: 83 kg

DRUGS (2)
  1. PACLITAXEL [Suspect]
     Active Substance: PACLITAXEL
     Indication: Product used for unknown indication
     Dosage: 6 MG/ML CONCENTRATE FOR SOLUTION FOR INFUSION?350 GIVEN FROM 10:40-10:45
     Dates: start: 20211116
  2. CARBOPLATIN [Concomitant]
     Active Substance: CARBOPLATIN
     Dosage: GIVEN FROM 09:30-10:30?10 MG/ML CONCENTRATE FOR THE PREPARATION OF AN INFUSION
     Dates: start: 20211116

REACTIONS (7)
  - Heart rate decreased [Recovered/Resolved]
  - Feeling hot [Recovered/Resolved]
  - Dizziness [Recovered/Resolved]
  - Oxygen saturation decreased [Recovered/Resolved]
  - Blood pressure fluctuation [Recovered/Resolved]
  - Blood pressure increased [Recovered/Resolved]
  - Hyperhidrosis [Recovered/Resolved]

NARRATIVE: CASE EVENT DATE: 20211116
